FAERS Safety Report 7272250-0 (Version None)
Quarter: 2011Q1

REPORT INFORMATION
  Report Type: 
  Country: None (occurrence: None)
  Receive Date: 20110203
  Receipt Date: 20110124
  Transmission Date: 20110831
  Serious: Yes (Other)
  Sender: FDA-Public Use
  Company Number: PHFR2011GB00915

PATIENT
  Sex: Male

DRUGS (3)
  1. HORMONES [Concomitant]
     Indication: PROSTATE CANCER
     Dosage: UNK DF, UNK
  2. EXELON [Suspect]
     Dosage: 9.5 MG, QD
     Route: 062
  3. WARFARIN SODIUM [Concomitant]
     Indication: HEART VALVE REPLACEMENT
     Dosage: UNK DF, UNK

REACTIONS (4)
  - PROSTATE CANCER [None]
  - TRANSIENT ISCHAEMIC ATTACK [None]
  - APPLICATION SITE ERYTHEMA [None]
  - DRY SKIN [None]
